FAERS Safety Report 15949628 (Version 3)
Quarter: 2019Q2

REPORT INFORMATION
  Report Type: Spontaneous
  Country: US (occurrence: US)
  Receive Date: 20190211
  Receipt Date: 20190422
  Transmission Date: 20190711
  Serious: Yes (Other)
  Sender: FDA-Public Use
  Company Number: US-ASTRAZENECA-2019SE10615

PATIENT
  Sex: Female
  Weight: 103 kg

DRUGS (24)
  1. NEXIUM [Suspect]
     Active Substance: ESOMEPRAZOLE MAGNESIUM
     Indication: GASTROOESOPHAGEAL REFLUX DISEASE
     Dosage: GENERIC
     Route: 048
  2. RANEXA [Concomitant]
     Active Substance: RANOLAZINE
     Dates: start: 20161020
  3. OMEPRAZOLE. [Suspect]
     Active Substance: OMEPRAZOLE
     Indication: GASTROOESOPHAGEAL REFLUX DISEASE
     Dosage: GENERIC
     Route: 048
     Dates: start: 200501, end: 201812
  4. LISINOPRIL. [Concomitant]
     Active Substance: LISINOPRIL
     Dates: start: 20170412
  5. LYRICA [Concomitant]
     Active Substance: PREGABALIN
     Dates: start: 20150830
  6. CIPROFLOXACIN. [Concomitant]
     Active Substance: CIPROFLOXACIN
  7. JANUVIA [Concomitant]
     Active Substance: SITAGLIPTIN PHOSPHATE
  8. DOXYCYCLINE. [Concomitant]
     Active Substance: DOXYCYCLINE
     Dates: start: 20161020
  9. ALBUTEROL. [Concomitant]
     Active Substance: ALBUTEROL
     Dates: start: 20180204
  10. DULOXETINE. [Concomitant]
     Active Substance: DULOXETINE
     Dates: start: 20140507
  11. SYNTHROID [Concomitant]
     Active Substance: LEVOTHYROXINE SODIUM
  12. NEXIUM [Suspect]
     Active Substance: ESOMEPRAZOLE MAGNESIUM
     Indication: GASTROOESOPHAGEAL REFLUX DISEASE
     Route: 048
     Dates: start: 20170814
  13. LEVOTHYROXINE. [Concomitant]
     Active Substance: LEVOTHYROXINE
  14. CARVEDILOL. [Concomitant]
     Active Substance: CARVEDILOL
  15. FUROSEMIDE. [Concomitant]
     Active Substance: FUROSEMIDE
     Dates: start: 20170419
  16. NEXIUM [Suspect]
     Active Substance: ESOMEPRAZOLE MAGNESIUM
     Indication: GASTROOESOPHAGEAL REFLUX DISEASE
     Route: 048
     Dates: start: 200501, end: 201812
  17. PRIMIDONE. [Concomitant]
     Active Substance: PRIMIDONE
  18. DICLOFENAC [Concomitant]
     Active Substance: DICLOFENAC
     Dates: start: 20170417
  19. PRIMIDONE. [Concomitant]
     Active Substance: PRIMIDONE
     Dates: start: 20160322
  20. AMOXICILLIN. [Concomitant]
     Active Substance: AMOXICILLIN
     Dates: start: 20150830
  21. ZANTAC [Concomitant]
     Active Substance: RANITIDINE HYDROCHLORIDE
  22. RANITIDINE. [Concomitant]
     Active Substance: RANITIDINE
     Dates: start: 20170116
  23. RANITIDINE. [Concomitant]
     Active Substance: RANITIDINE
     Dates: start: 20170116
  24. NAPROXEN. [Concomitant]
     Active Substance: NAPROXEN
     Dates: start: 20180204

REACTIONS (5)
  - Renal failure [Unknown]
  - Renal injury [Unknown]
  - Chronic kidney disease [Recovering/Resolving]
  - Rebound acid hypersecretion [Unknown]
  - Acute kidney injury [Unknown]
